FAERS Safety Report 6666940-8 (Version None)
Quarter: 2010Q1

REPORT INFORMATION
  Report Type: 
  Country: None (occurrence: None)
  Receive Date: 20100331
  Receipt Date: 20100319
  Transmission Date: 20100710
  Serious: Yes (Disabling)
  Sender: FDA-Public Use
  Company Number: LEO-2010-00217

PATIENT
  Age: 36 Year
  Sex: Female
  Weight: 64 kg

DRUGS (4)
  1. INNOHEP [Suspect]
     Indication: PROPHYLAXIS
     Dosage: 10000 IU (10000 IU, 1 IN 1 D), SIUBCUTANEOUS; 12000 IU (12000 IU, 1 IN 1 D), SUBCUTANEOUS
     Route: 058
     Dates: start: 20060312, end: 20060314
  2. INNOHEP [Suspect]
     Indication: PROPHYLAXIS
     Dosage: 10000 IU (10000 IU, 1 IN 1 D), SIUBCUTANEOUS; 12000 IU (12000 IU, 1 IN 1 D), SUBCUTANEOUS
     Route: 058
     Dates: start: 20060315, end: 20060425
  3. PHENPROCOUMON (PHENPROCOUMON) [Concomitant]
  4. HEPARIN [Concomitant]

REACTIONS (2)
  - DRUG EXPOSURE DURING PREGNANCY [None]
  - ISCHAEMIC STROKE [None]
